FAERS Safety Report 19418798 (Version 2)
Quarter: 2021Q2

REPORT INFORMATION
  Report Type: Other
  Country: GB (occurrence: GB)
  Receive Date: 20210615
  Receipt Date: 20210630
  Transmission Date: 20210717
  Serious: Yes (Death, Life-Threatening, Hospitalization, Disabling, Other)
  Sender: FDA-Public Use
  Company Number: GB-STRIDES ARCOLAB LIMITED-2021SP006374

PATIENT
  Age: 5 Year
  Sex: Male
  Weight: 9.7 kg

DRUGS (31)
  1. POTASSIUM CHLORIDE. [Suspect]
     Active Substance: POTASSIUM CHLORIDE
     Indication: PNEUMONIA
     Dosage: UNK
     Route: 065
  2. CO?AMOXICLAV [AMOXICILLIN;CLAVULANATE POTASSIUM] [Suspect]
     Active Substance: AMOXICILLIN\CLAVULANATE POTASSIUM
     Indication: PNEUMONIA
     Dosage: UNK
     Route: 065
     Dates: start: 20150611
  3. DURAGESIC [Suspect]
     Active Substance: FENTANYL
     Dosage: UNK
     Route: 065
  4. GENTAMICIN. [Suspect]
     Active Substance: GENTAMICIN
     Indication: MEASLES IMMUNISATION
     Dosage: UNK
     Route: 042
  5. M?M?RVAXPRO [Suspect]
     Active Substance: MEASLES VIRUS STRAIN ENDERS^ ATTENUATED EDMONSTON LIVE ANTIGEN\MUMPS VIRUS STRAIN B LEVEL JERYL LYNN LIVE ANTIGEN\RUBELLA VIRUS STRAIN WISTAR RA 27/3 LIVE ANTIGEN
     Indication: PNEUMOCOCCAL SEPSIS
     Dosage: UNK
     Route: 065
  6. PIPERACILLIN AND TAZOBACTAM [Suspect]
     Active Substance: PIPERACILLIN SODIUM\TAZOBACTAM SODIUM
     Indication: RESPIRATORY ARREST
     Dosage: UNK
     Route: 065
  7. RUBELLA VIRUS VACCINE LIVE ATTENUATED [Suspect]
     Active Substance: RUBELLA VIRUS STRAIN WISTAR RA 27/3 LIVE ANTIGEN
     Indication: PRODUCT USED FOR UNKNOWN INDICATION
     Dosage: UNK
     Route: 065
  8. SALBUTAMOL [Suspect]
     Active Substance: ALBUTEROL
     Indication: PRODUCT USED FOR UNKNOWN INDICATION
     Dosage: UNK
     Route: 065
  9. SODIUM CITRATE DIHYDRATE [Suspect]
     Active Substance: TRISODIUM CITRATE DIHYDRATE
     Indication: PNEUMONIA
     Dosage: UNK
     Route: 065
  10. CEFUROXIME AXETIL. [Suspect]
     Active Substance: CEFUROXIME AXETIL
     Indication: ANTIBIOTIC THERAPY
     Dosage: UNK
     Route: 042
  11. CO?AMOXICLAV [AMOXICILLIN;CLAVULANATE POTASSIUM] [Suspect]
     Active Substance: AMOXICILLIN\CLAVULANATE POTASSIUM
     Dosage: UNK
     Route: 065
     Dates: start: 20150714, end: 20160720
  12. DORNASE ALFA. [Suspect]
     Active Substance: DORNASE ALFA
     Indication: INTERSTITIAL LUNG DISEASE
     Dosage: UNK
     Route: 065
  13. GENTAMICIN. [Suspect]
     Active Substance: GENTAMICIN
     Indication: MUMPS IMMUNISATION
     Dosage: UNK
     Route: 042
  14. SODIUM CHLORIDE. [Suspect]
     Active Substance: SODIUM CHLORIDE
     Dosage: UNK
     Route: 065
  15. DORNASE ALFA. [Suspect]
     Active Substance: DORNASE ALFA
     Dosage: UNK
     Route: 065
  16. DURAGESIC [Suspect]
     Active Substance: FENTANYL
     Dosage: UNK
     Route: 065
  17. MEROPENEM. [Suspect]
     Active Substance: MEROPENEM
     Indication: ANTIBIOTIC THERAPY
     Dosage: UNK
     Route: 065
  18. PHENOXYMETHYLPENICILLIN [Suspect]
     Active Substance: PENICILLIN V
     Indication: ANTIBIOTIC THERAPY
     Dosage: UNK
     Route: 065
  19. DURAGESIC [Suspect]
     Active Substance: FENTANYL
     Indication: PRODUCT USED FOR UNKNOWN INDICATION
     Dosage: UNK
     Route: 065
  20. BENZYLPENICILLIN [Suspect]
     Active Substance: PENICILLIN G
     Indication: PRODUCT USED FOR UNKNOWN INDICATION
     Dosage: UNK
     Route: 065
  21. DORNASE ALFA. [Suspect]
     Active Substance: DORNASE ALFA
     Dosage: UNK
     Route: 065
  22. GENTAMICIN. [Suspect]
     Active Substance: GENTAMICIN
     Indication: ANTIBIOTIC THERAPY
     Dosage: UNK
     Route: 042
  23. SODIUM CITRATE DIHYDRATE [Suspect]
     Active Substance: TRISODIUM CITRATE DIHYDRATE
     Dosage: UNK
     Route: 065
  24. GLUCOSE [Suspect]
     Active Substance: DEXTROSE
     Indication: PNEUMONIA
     Dosage: UNK
     Route: 065
  25. GENTAMICIN. [Suspect]
     Active Substance: GENTAMICIN
     Indication: PNEUMOCOCCAL SEPSIS
     Dosage: UNK
     Route: 065
  26. MUMPS VIRUS VACCINE LIVE NOS [Suspect]
     Active Substance: MUMPS VIRUS STRAIN B LEVEL JERYL LYNN LIVE ANTIGEN
     Indication: PRODUCT USED FOR UNKNOWN INDICATION
     Dosage: UNK
     Route: 065
  27. CIPROFLOXACIN. [Suspect]
     Active Substance: CIPROFLOXACIN
     Indication: PRODUCT USED FOR UNKNOWN INDICATION
     Dosage: UNK
     Route: 065
  28. GENTAMICIN. [Suspect]
     Active Substance: GENTAMICIN
     Indication: RUBELLA IMMUNISATION
     Dosage: UNK
     Route: 065
  29. PIPERACILLIN AND TAZOBACTAM [Suspect]
     Active Substance: PIPERACILLIN SODIUM\TAZOBACTAM SODIUM
     Indication: VOMITING
     Dosage: UNK
     Route: 065
  30. PROPOFOL. [Suspect]
     Active Substance: PROPOFOL
     Indication: PRODUCT USED FOR UNKNOWN INDICATION
     Dosage: UNK
     Route: 065
  31. SODIUM CHLORIDE. [Suspect]
     Active Substance: SODIUM CHLORIDE
     Indication: PNEUMONIA
     Dosage: UNK
     Route: 065

REACTIONS (33)
  - Muscular weakness [Fatal]
  - Respiratory tract infection bacterial [Fatal]
  - Atelectasis [Fatal]
  - Pneumonia [Fatal]
  - Lung consolidation [Fatal]
  - Injury [Fatal]
  - Dehydration [Fatal]
  - Respiratory arrest [Fatal]
  - Ischaemic cerebral infarction [Fatal]
  - Chest X-ray abnormal [Fatal]
  - Interstitial lung disease [Fatal]
  - Pneumonia aspiration [Fatal]
  - Malaise [Fatal]
  - Cerebral ischaemia [Fatal]
  - Brain injury [Fatal]
  - Spinal muscular atrophy [Fatal]
  - Metabolic disorder [Fatal]
  - Motor dysfunction [Fatal]
  - Sputum increased [Fatal]
  - Resuscitation [Fatal]
  - Dysphagia [Fatal]
  - Tachypnoea [Fatal]
  - Vomiting [Fatal]
  - Intestinal ischaemia [Fatal]
  - Disease complication [Fatal]
  - Pyrexia [Fatal]
  - Inflammation [Fatal]
  - Diarrhoea [Fatal]
  - Condition aggravated [Fatal]
  - Dyspnoea [Fatal]
  - Circulatory collapse [Fatal]
  - Increased bronchial secretion [Fatal]
  - Pneumococcal sepsis [Fatal]

NARRATIVE: CASE EVENT DATE: 20160620
